FAERS Safety Report 15569985 (Version 1)
Quarter: 2018Q4

REPORT INFORMATION
  Report Type: Spontaneous
  Country: US (occurrence: US)
  Receive Date: 20181025
  Receipt Date: 20181025
  Transmission Date: 20190205
  Serious: No
  Sender: FDA-Public Use
  Company Number: None

PATIENT

DRUGS (1)
  1. HYDROXYPROG 250MG/ML (1ML SDV) [Suspect]
     Active Substance: HYDROXYPROGESTERONE CAPROATE
     Dates: start: 20181024

REACTIONS (2)
  - No adverse event [None]
  - Device use issue [None]

NARRATIVE: CASE EVENT DATE: 20181024
